FAERS Safety Report 17815672 (Version 1)
Quarter: 2020Q2

REPORT INFORMATION
  Report Type: Spontaneous
  Country: US (occurrence: US)
  Receive Date: 20200522
  Receipt Date: 20200522
  Transmission Date: 20200714
  Serious: Yes (Other)
  Sender: FDA-Public Use
  Company Number: None

PATIENT
  Age: 42 Year
  Sex: Male
  Weight: 89.5 kg

DRUGS (4)
  1. ALBUMIN [Concomitant]
     Active Substance: ALBUMIN HUMAN
     Dates: start: 20200520
  2. RIFAXIMIN. [Concomitant]
     Active Substance: RIFAXIMIN
     Dates: start: 20200520
  3. CEFTRIAXONE. [Suspect]
     Active Substance: CEFTRIAXONE
     Route: 040
     Dates: start: 20200520, end: 20200521
  4. OCTREOTIDE. [Concomitant]
     Active Substance: OCTREOTIDE
     Dates: start: 20200520, end: 20200522

REACTIONS (5)
  - Anaphylactic reaction [None]
  - Wheezing [None]
  - Oxygen saturation decreased [None]
  - Hypotension [None]
  - Tachycardia [None]

NARRATIVE: CASE EVENT DATE: 20200521
